FAERS Safety Report 22347224 (Version 1)
Quarter: 2023Q2

REPORT INFORMATION
  Report Type: Spontaneous
  Country: US (occurrence: US)
  Receive Date: 20230521
  Receipt Date: 20230521
  Transmission Date: 20230722
  Serious: No
  Sender: FDA-Public Use
  Company Number: US-GSKCCFUS-Case-01698688_AE-95881

PATIENT
  Sex: Female

DRUGS (1)
  1. TRELEGY ELLIPTA [Suspect]
     Active Substance: FLUTICASONE FUROATE\UMECLIDINIUM BROMIDE\VILANTEROL TRIFENATATE
     Indication: Bronchitis
     Dosage: 1 PUFF(S), QD,100/62.5/25MCG
     Route: 055
     Dates: start: 20230510

REACTIONS (4)
  - Cough [Unknown]
  - Chest pain [Unknown]
  - Product use in unapproved indication [Unknown]
  - Product prescribing issue [Unknown]
